FAERS Safety Report 13387880 (Version 4)
Quarter: 2018Q1

REPORT INFORMATION
  Report Type: Spontaneous
  Country: DE (occurrence: DE)
  Receive Date: 20170330
  Receipt Date: 20180102
  Transmission Date: 20180508
  Serious: Yes (Other)
  Sender: FDA-Public Use
  Company Number: DE-009507513-1703DEU011955

PATIENT
  Age: 68 Year
  Sex: Male
  Weight: 90 kg

DRUGS (17)
  1. CONCOR [Concomitant]
     Active Substance: BISOPROLOL FUMARATE
     Indication: HYPERTENSION
     Dosage: 2.5 MG, 1-0-0
     Route: 048
     Dates: start: 20170116, end: 20170307
  2. MELPERONE [Concomitant]
     Active Substance: MELPERONE
     Indication: SLEEP DISORDER
     Dosage: UNK, QD (1-0-0)
     Route: 048
  3. NOVALGIN (DIPYRONE) [Concomitant]
     Active Substance: DIPYRONE
     Indication: PROCEDURAL HEADACHE
     Dosage: 2000MG, QID, 4X1/DAY
     Route: 048
     Dates: start: 20170116, end: 20170307
  4. BIFITERAL [Concomitant]
     Active Substance: LACTULOSE
     Dosage: UNK, TID (1-1-1)
  5. DULCOLAX NOS [Concomitant]
     Active Substance: BISACODYL OR DOCUSATE SODIUM
     Dosage: 2 DF, UNK (2 CAPSULES EVERY 2 DAYS)
  6. HYDROCHLOROTHIAZIDE. [Concomitant]
     Active Substance: HYDROCHLOROTHIAZIDE
     Indication: HYPERTENSION
     Dosage: 12.5 MG, QD
     Route: 048
     Dates: start: 20170116, end: 20170307
  7. COTRIM FORTE [Concomitant]
     Active Substance: SULFAMETHOXAZOLE\TRIMETHOPRIM
     Indication: HYPERTENSION
     Dosage: 2X1 EVERY SECOND DAY
     Route: 048
     Dates: start: 20170125, end: 20170207
  8. PANTOZOL [Concomitant]
     Active Substance: PANTOPRAZOLE SODIUM
     Dosage: 20 MG, QAM (1-0-0)
  9. TEMOZOLOMIDE. [Suspect]
     Active Substance: TEMOZOLOMIDE
     Indication: GLIOBLASTOMA MULTIFORME
     Dosage: 140 MG, QD
     Route: 048
     Dates: start: 20170125, end: 20170207
  10. DEXAMETHASONE. [Concomitant]
     Active Substance: DEXAMETHASONE
     Indication: PROPHYLAXIS
     Dosage: DEXAMETHASONE WAS REDUCED FROM 8MG TO 2MG PER DAY
     Route: 048
  11. TAVOR (FLUCONAZOLE) [Concomitant]
     Active Substance: FLUCONAZOLE
     Dosage: 1 MG, PRN (1 MG ON DEMAND)
  12. JANUVIA [Concomitant]
     Active Substance: SITAGLIPTIN PHOSPHATE
     Indication: TYPE 2 DIABETES MELLITUS
     Dosage: 100 MG, 1-0-0 CURRENTLY BREAK DUE TO INCREASED TRANSAMINASES
     Route: 048
     Dates: start: 20170116, end: 20170307
  13. NOVALGIN (DIPYRONE) [Concomitant]
     Active Substance: DIPYRONE
     Indication: PROCEDURAL HEADACHE
     Dosage: UNK, TID (1-1-1)
  14. MONO EMBOLEX [Concomitant]
     Active Substance: CERTOPARIN SODIUM
     Indication: PROPHYLAXIS
     Dosage: 3000 IU INTERNATIONAL UNTIS, 1XDAILY 19:00
     Route: 058
     Dates: start: 20170116, end: 20170307
  15. REKAWAN [Concomitant]
     Active Substance: POTASSIUM CHLORIDE
     Dosage: UNK, QD (1-0-0)
  16. DEXAMETHASONE. [Concomitant]
     Active Substance: DEXAMETHASONE
     Dosage: STOP DEXAMETHASONE 2MG 1-0-0
     Route: 048
  17. GRANISETRON [Concomitant]
     Active Substance: GRANISETRON

REACTIONS (16)
  - Jaundice [Recovering/Resolving]
  - Hepatic enzyme increased [Recovering/Resolving]
  - Gait inability [Unknown]
  - Hemiplegia [Unknown]
  - Procedural headache [Recovering/Resolving]
  - Disorientation [Unknown]
  - Cholelithiasis [Unknown]
  - C-reactive protein abnormal [Unknown]
  - Confusional state [Recovered/Resolved]
  - Constipation [Unknown]
  - White blood cell count decreased [Recovered/Resolved]
  - Blood bilirubin increased [Recovering/Resolving]
  - Platelet count decreased [Recovered/Resolved]
  - Drug-induced liver injury [Recovering/Resolving]
  - General physical health deterioration [Unknown]
  - Agitation [Recovered/Resolved]

NARRATIVE: CASE EVENT DATE: 2017
